FAERS Safety Report 15354216 (Version 1)
Quarter: 2018Q3

REPORT INFORMATION
  Report Type: Spontaneous
  Country: BR (occurrence: BR)
  Receive Date: 20180906
  Receipt Date: 20180906
  Transmission Date: 20181010
  Serious: Yes (Death, Hospitalization, Other)
  Sender: FDA-Public Use
  Company Number: PHHY2018BR065946

PATIENT
  Sex: Male
  Weight: 96 kg

DRUGS (1)
  1. VOLTAREN [Suspect]
     Active Substance: DICLOFENAC SODIUM
     Indication: SPINAL PAIN
     Dosage: UNK
     Route: 042

REACTIONS (6)
  - Vasodilatation [Not Recovered/Not Resolved]
  - Spinal disorder [Not Recovered/Not Resolved]
  - Multiple organ dysfunction syndrome [Fatal]
  - Pain [Not Recovered/Not Resolved]
  - Small intestinal haemorrhage [Unknown]
  - Eating disorder [Not Recovered/Not Resolved]
